FAERS Safety Report 15831276 (Version 1)
Quarter: 2018Q4

REPORT INFORMATION
  Report Type: Spontaneous
  Country: US (occurrence: US)
  Receive Date: 20181219
  Receipt Date: 20181219
  Transmission Date: 20190205
  Serious: Yes (Death)
  Sender: FDA-Public Use
  Company Number: None

PATIENT
  Age: 58 Year
  Sex: Female

DRUGS (5)
  1. FLUOROURACIL. [Suspect]
     Active Substance: FLUOROURACIL
  2. ONDANSETRON [Suspect]
     Active Substance: ONDANSETRON
  3. DEXAMETHASONE. [Suspect]
     Active Substance: DEXAMETHASONE
  4. OXALIPLATIN. [Suspect]
     Active Substance: OXALIPLATIN
  5. LEUCOVORIN. [Suspect]
     Active Substance: LEUCOVORIN

REACTIONS (1)
  - Death [None]
